FAERS Safety Report 7482242-4 (Version None)
Quarter: 2011Q2

REPORT INFORMATION
  Report Type: 
  Country: None (occurrence: None)
  Receive Date: 20110516
  Receipt Date: 20110510
  Transmission Date: 20111010
  Serious: Yes (Other)
  Sender: FDA-Public Use
  Company Number: US-PFIZER INC-2008053899

PATIENT
  Sex: Female
  Weight: 113.4 kg

DRUGS (13)
  1. ZONEGRAN [Concomitant]
     Indication: CONVULSION
  2. KEPPRA [Concomitant]
  3. VITAMINS [Concomitant]
  4. ZOLPIDEM [Concomitant]
     Indication: SLEEP DISORDER
  5. GEODON [Concomitant]
  6. LISINOPRIL [Concomitant]
  7. FLONASE [Concomitant]
  8. COMBIVENT [Concomitant]
  9. CHANTIX [Suspect]
     Indication: SMOKING CESSATION THERAPY
     Dosage: 0.5 MG, 1X/DAY
     Route: 048
     Dates: start: 20080101
  10. CHANTIX [Suspect]
     Dosage: UNK
  11. PIROXICAM [Concomitant]
  12. FLOVENT [Concomitant]
  13. CODEINE SULFATE [Concomitant]

REACTIONS (27)
  - FOOD CRAVING [None]
  - FEELING ABNORMAL [None]
  - SCREAMING [None]
  - INJURY [None]
  - GASTRIC DISORDER [None]
  - MOOD ALTERED [None]
  - CHEST DISCOMFORT [None]
  - NICOTINE DEPENDENCE [None]
  - CRYING [None]
  - INCORRECT DOSE ADMINISTERED [None]
  - NEUROPATHY PERIPHERAL [None]
  - DYSGEUSIA [None]
  - SYNCOPE [None]
  - NECK PAIN [None]
  - ANXIETY [None]
  - ABDOMINAL DISTENSION [None]
  - HUNGER [None]
  - MUSCULOSKELETAL DISCOMFORT [None]
  - ABDOMINAL PAIN UPPER [None]
  - WEIGHT INCREASED [None]
  - AGGRESSION [None]
  - INSOMNIA [None]
  - MALAISE [None]
  - ABDOMINAL DISCOMFORT [None]
  - INCREASED APPETITE [None]
  - FALL [None]
  - DRUG INEFFECTIVE [None]
